FAERS Safety Report 17534216 (Version 1)
Quarter: 2020Q1

REPORT INFORMATION
  Report Type: Spontaneous
  Country: US (occurrence: US)
  Receive Date: 20200312
  Receipt Date: 20200312
  Transmission Date: 20200409
  Serious: Yes (Hospitalization)
  Sender: FDA-Public Use
  Company Number: US-UPSHER-SMITH LABORATORIES, LLC-2020USL00141

PATIENT
  Sex: Male
  Weight: 78.01 kg

DRUGS (4)
  1. UNSPECIFIED MEDICATIONS [Concomitant]
     Active Substance: UNSPECIFIED INGREDIENT
  2. UNSPECIFIED SUPPLEMENTS [Concomitant]
  3. JANTOVEN [Suspect]
     Active Substance: WARFARIN SODIUM
     Dosage: UNK
     Dates: start: 2019
  4. JANTOVEN [Suspect]
     Active Substance: WARFARIN SODIUM
     Indication: THROMBOSIS
     Dosage: UNK
     Dates: end: 201910

REACTIONS (3)
  - International normalised ratio fluctuation [Not Recovered/Not Resolved]
  - Transient ischaemic attack [Unknown]
  - Peripheral swelling [Unknown]

NARRATIVE: CASE EVENT DATE: 2019
